FAERS Safety Report 5712125-9 (Version None)
Quarter: 2008Q2

REPORT INFORMATION
  Report Type: 
  Country: None (occurrence: None)
  Receive Date: 20080417
  Receipt Date: 20080407
  Transmission Date: 20081010
  Serious: Yes (Other)
  Sender: FDA-Public Use
  Company Number: 18929

PATIENT
  Age: 31 Year
  Sex: Female

DRUGS (6)
  1. DACARBAZINE [Suspect]
     Indication: HODGKIN'S DISEASE
  2. VINBLASTINE SULFATE [Suspect]
     Indication: HODGKIN'S DISEASE
  3. BLEOMYCIN SULFATE [Suspect]
     Indication: HODGKIN'S DISEASE
  4. DOXORUBICIN HCL [Suspect]
     Indication: HODGKIN'S DISEASE
  5. RITUXIMAB [Suspect]
     Indication: HODGKIN'S DISEASE
  6. NEUPOGEN [Concomitant]

REACTIONS (2)
  - DRUG TOXICITY [None]
  - PULMONARY TOXICITY [None]
